FAERS Safety Report 6174909-5 (Version None)
Quarter: 2009Q2

REPORT INFORMATION
  Report Type: 
  Country: None (occurrence: None)
  Receive Date: 20090430
  Receipt Date: 20081002
  Transmission Date: 20091009
  Serious: Yes (Other)
  Sender: FDA-Public Use
  Company Number: US-ASTRAZENECA-2008UW21530

PATIENT
  Age: 66 Year
  Sex: Male

DRUGS (4)
  1. NEXIUM [Suspect]
     Route: 048
  2. COREG [Concomitant]
  3. ACIPHEX [Concomitant]
  4. MAXZIDE [Concomitant]

REACTIONS (1)
  - ANGIOEDEMA [None]
